FAERS Safety Report 20133424 (Version 1)
Quarter: 2021Q4

REPORT INFORMATION
  Report Type: Spontaneous
  Country: JP (occurrence: JP)
  Receive Date: 20211201
  Receipt Date: 20211201
  Transmission Date: 20220303
  Serious: Yes (Death, Hospitalization, Other)
  Sender: FDA-Public Use
  Company Number: JP-SAKK-2021SA358247AA

PATIENT
  Age: 81 Year
  Sex: Male
  Weight: 51.7 kg

DRUGS (9)
  1. JEVTANA [Suspect]
     Active Substance: CABAZITAXEL
     Indication: Hormone-refractory prostate cancer
     Dosage: 30 MG/BODY, QD
     Route: 041
     Dates: start: 20211019
  2. JEVTANA [Suspect]
     Active Substance: CABAZITAXEL
     Dosage: 30 MG, QD
     Route: 041
     Dates: start: 20210921
  3. PREDNISOLONE [Concomitant]
     Active Substance: PREDNISOLONE
     Indication: Hormone-refractory prostate cancer
     Dosage: 10 MG, QD
     Route: 048
     Dates: start: 20210921
  4. ELDECALCITOL [Concomitant]
     Active Substance: ELDECALCITOL
     Indication: Product used for unknown indication
     Dosage: 1 TABLET, QD
     Route: 048
  5. CALONAL [Concomitant]
     Active Substance: ACETAMINOPHEN
     Indication: Product used for unknown indication
     Dosage: 1 TABLET, TID
     Route: 048
  6. URSO [Concomitant]
     Active Substance: URSODIOL
     Indication: Product used for unknown indication
     Dosage: 1 TABLET, TID
     Route: 048
  7. FUROSEMIDE [Concomitant]
     Active Substance: FUROSEMIDE
     Indication: Product used for unknown indication
     Dosage: 40
     Route: 065
  8. MIRABEGRON [Concomitant]
     Active Substance: MIRABEGRON
     Indication: Product used for unknown indication
     Dosage: 1 TABLET, QD
     Route: 048
  9. HERBALS [Concomitant]
     Active Substance: HERBALS
     Indication: Product used for unknown indication
     Dosage: 2.5 MG, TID (BEFORE MEAL)
     Route: 065

REACTIONS (9)
  - Blood pressure decreased [Fatal]
  - Septic shock [Fatal]
  - Chills [Fatal]
  - Vomiting [Fatal]
  - Febrile neutropenia [Fatal]
  - Pyrexia [Fatal]
  - Shock [Fatal]
  - Circulatory collapse [Fatal]
  - Escherichia infection [Fatal]

NARRATIVE: CASE EVENT DATE: 20211001
